FAERS Safety Report 15056601 (Version 3)
Quarter: 2018Q4

REPORT INFORMATION
  Report Type: Spontaneous
  Country: NL (occurrence: NL)
  Receive Date: 20180623
  Receipt Date: 20181011
  Transmission Date: 20190204
  Serious: Yes (Other)
  Sender: FDA-Public Use
  Company Number: NL-009507513-1806NLD007856

PATIENT
  Age: 49 Year
  Sex: Male
  Weight: 103 kg

DRUGS (8)
  1. SINEMET [Suspect]
     Active Substance: CARBIDOPA\LEVODOPA
     Indication: PARKINSON^S DISEASE
     Dosage: QID
     Route: 048
     Dates: start: 20180522, end: 20180619
  2. PENTASA [Concomitant]
     Active Substance: MESALAMINE
     Indication: CROHN^S DISEASE
     Dosage: 4 G, UNK
  3. TRANXENE [Concomitant]
     Active Substance: CLORAZEPATE DIPOTASSIUM
     Indication: FEAR
     Dosage: 5 MG, BID
  4. MEBEVERINE [Concomitant]
     Active Substance: MEBEVERINE
     Indication: CROHN^S DISEASE
     Dosage: 200 MG, TID
  5. SINEMET [Suspect]
     Active Substance: CARBIDOPA\LEVODOPA
     Dosage: MORNING 2 TABLETS, AFTERNOON 3 TABLETS, EVENING 3 TABLETS, BEFORE GOING TO BED 2 TABLETS.
     Route: 048
     Dates: start: 20180619
  6. BUDESONIDE. [Concomitant]
     Active Substance: BUDESONIDE
     Indication: CROHN^S DISEASE
     Dosage: 3 MG, TID
  7. SINEMET [Suspect]
     Active Substance: CARBIDOPA\LEVODOPA
     Indication: PARKINSON^S DISEASE
     Dosage: MORNING 2 TABLETS, AFTERNOON 3 TABLETS, EVENING 3 TABLETS, BEFORE GOING TO BED 2 TABLETS.
     Route: 048
  8. NEXIUM [Concomitant]
     Active Substance: ESOMEPRAZOLE MAGNESIUM
     Indication: GASTRIC DISORDER
     Dosage: 20 MG, UNK

REACTIONS (10)
  - Feeling hot [Recovering/Resolving]
  - Hyperhidrosis [Recovering/Resolving]
  - Paraesthesia [Recovering/Resolving]
  - Feeling abnormal [Recovering/Resolving]
  - Product physical issue [Unknown]
  - Chest discomfort [Recovering/Resolving]
  - Adverse event [Recovered/Resolved]
  - Body temperature decreased [Recovering/Resolving]
  - Heart rate irregular [Recovering/Resolving]
  - Parkinson^s disease [Unknown]

NARRATIVE: CASE EVENT DATE: 20180522
